FAERS Safety Report 7853234 (Version 4)
Quarter: 2015Q2

REPORT INFORMATION
  Report Type: Report from Study
  Country: US (occurrence: US)
  Receive Date: 20110314
  Receipt Date: 20150430
  Transmission Date: 20150821
  Serious: Yes (Hospitalization)
  Sender: FDA-Public Use
  Company Number: US-BIOGENIDEC-2011BI008390

PATIENT
  Age: 53 Year
  Sex: Male

DRUGS (1)
  1. TYSABRI [Suspect]
     Active Substance: NATALIZUMAB
     Indication: CROHN^S DISEASE
     Route: 042
     Dates: start: 20080430

REACTIONS (3)
  - Cerebrospinal fluid leakage [Not Recovered/Not Resolved]
  - Skin infection [Not Recovered/Not Resolved]
  - Meningioma [Recovered/Resolved]

NARRATIVE: CASE EVENT DATE: 2011
